FAERS Safety Report 24306668 (Version 3)
Quarter: 2025Q1

REPORT INFORMATION
  Report Type: Spontaneous
  Country: FR (occurrence: FR)
  Receive Date: 20240911
  Receipt Date: 20250312
  Transmission Date: 20250409
  Serious: Yes (Hospitalization, Other)
  Sender: PFIZER
  Company Number: FR-ROCHE-10000068635

PATIENT
  Age: 68 Year
  Sex: Female
  Weight: 48 kg

DRUGS (4)
  1. CARBOPLATIN [Suspect]
     Active Substance: CARBOPLATIN
     Indication: Breast cancer female
     Route: 042
     Dates: start: 20240806, end: 20240806
  2. ATEZOLIZUMAB [Suspect]
     Active Substance: ATEZOLIZUMAB
     Indication: Breast cancer female
     Route: 042
     Dates: start: 20240806, end: 20250106
  3. PACLITAXEL [Suspect]
     Active Substance: PACLITAXEL
     Indication: Breast cancer female
     Route: 042
     Dates: start: 20240806, end: 20240813
  4. TIRAGOLUMAB [Suspect]
     Active Substance: TIRAGOLUMAB
     Indication: Breast cancer female
     Route: 042
     Dates: start: 20240806, end: 20250106

REACTIONS (4)
  - Staphylococcal infection [Recovered/Resolved with Sequelae]
  - Vascular device infection [Recovered/Resolved with Sequelae]
  - Troponin increased [Not Recovered/Not Resolved]
  - Off label use [Unknown]

NARRATIVE: CASE EVENT DATE: 20240806
